FAERS Safety Report 14844146 (Version 1)
Quarter: 2018Q2

REPORT INFORMATION
  Report Type: Report from Study
  Country: FR (occurrence: FR)
  Receive Date: 20180503
  Receipt Date: 20180503
  Transmission Date: 20180711
  Serious: Yes (Hospitalization, Other)
  Sender: FDA-Public Use
  Company Number: FR-PFIZER INC-2018173380

PATIENT
  Age: 2 Year
  Sex: Male

DRUGS (21)
  1. CYTARABINE. [Suspect]
     Active Substance: CYTARABINE
     Indication: ACUTE LYMPHOCYTIC LEUKAEMIA
     Dosage: 25 MG, UNK
     Route: 037
     Dates: start: 20170904, end: 20171006
  2. ARA-C [Suspect]
     Active Substance: CYTARABINE
     Indication: ACUTE LYMPHOCYTIC LEUKAEMIA
     Dosage: 25 MG, UNK
     Route: 037
     Dates: start: 20170904, end: 20170904
  3. ONCASPAR [Suspect]
     Active Substance: PEGASPARGASE
     Indication: ACUTE LYMPHOCYTIC LEUKAEMIA
     Dosage: 1275 IU, UNK
     Route: 065
     Dates: start: 20170904, end: 20170904
  4. ONCASPAR [Suspect]
     Active Substance: PEGASPARGASE
     Dosage: 1275 IU, UNK
     Route: 065
     Dates: start: 20171017, end: 20171017
  5. DEXAMETHASONE. [Suspect]
     Active Substance: DEXAMETHASONE
     Indication: ACUTE LYMPHOCYTIC LEUKAEMIA
     Dosage: 31.5 MG TOTAL DOSE FROM DAY 15 TO 21
     Route: 048
     Dates: start: 20170915, end: 20170921
  6. VINCRISTINE SULFATE. [Suspect]
     Active Substance: VINCRISTINE SULFATE
     Dosage: 0.75 MG, UNK
     Route: 042
     Dates: start: 20171017, end: 20171017
  7. DOXORUBICIN HCL [Suspect]
     Active Substance: DOXORUBICIN HYDROCHLORIDE
     Dosage: 12.4 MG, UNK
     Route: 042
     Dates: start: 20170908, end: 20170908
  8. DOXORUBICIN HCL [Suspect]
     Active Substance: DOXORUBICIN HYDROCHLORIDE
     Dosage: 12.4 MG, UNK
     Route: 042
     Dates: start: 20170915, end: 20170915
  9. ARA-C [Suspect]
     Active Substance: CYTARABINE
     Dosage: 25 MG, UNK
     Route: 037
     Dates: start: 20171005, end: 20171005
  10. CORTIC /00028604/ [Suspect]
     Active Substance: HYDROCORTISONE ACETATE
     Dosage: 12.5 MG, UNK
     Route: 037
     Dates: start: 20171005, end: 20171005
  11. 6-MP [Suspect]
     Active Substance: MERCAPTOPURINE
     Indication: ACUTE LYMPHOCYTIC LEUKAEMIA
     Dosage: 420 MG, UNK
     Route: 048
     Dates: start: 20171003, end: 20171016
  12. VINCRISTINE SULFATE. [Suspect]
     Active Substance: VINCRISTINE SULFATE
     Dosage: 0.75 MG, UNK
     Route: 042
     Dates: start: 20170908, end: 20170908
  13. VINCRISTINE SULFATE. [Suspect]
     Active Substance: VINCRISTINE SULFATE
     Dosage: 0.75 MG, UNK
     Route: 042
     Dates: start: 20170915, end: 20170915
  14. VINCRISTINE SULFATE. [Suspect]
     Active Substance: VINCRISTINE SULFATE
     Indication: ACUTE LYMPHOCYTIC LEUKAEMIA
     Dosage: UNK
     Route: 042
     Dates: start: 20170831, end: 20170831
  15. CYTARABINE. [Suspect]
     Active Substance: CYTARABINE
     Dosage: 140 MG, TOTAL DOSE
     Route: 065
     Dates: start: 20171005, end: 20171008
  16. CYTARABINE. [Suspect]
     Active Substance: CYTARABINE
     Dosage: 140 MG, TOTAL DOSE
     Route: 065
     Dates: start: 20171012, end: 20171015
  17. CORTIC /00028604/ [Suspect]
     Active Substance: HYDROCORTISONE ACETATE
     Indication: ACUTE LYMPHOCYTIC LEUKAEMIA
     Dosage: 12.6 MG, UNK
     Route: 037
     Dates: start: 20170904, end: 20170904
  18. DOXORUBICIN HCL [Suspect]
     Active Substance: DOXORUBICIN HYDROCHLORIDE
     Indication: ACUTE LYMPHOCYTIC LEUKAEMIA
     Dosage: UNK
     Route: 042
     Dates: start: 20170831, end: 20170831
  19. CYCLOPHOSPHAMIDE. [Suspect]
     Active Substance: CYCLOPHOSPHAMIDE
     Indication: ACUTE LYMPHOCYTIC LEUKAEMIA
     Dosage: UNK
     Route: 065
     Dates: start: 20171003, end: 20171003
  20. METHOTREXATE. [Suspect]
     Active Substance: METHOTREXATE
     Indication: ACUTE LYMPHOCYTIC LEUKAEMIA
     Dosage: 10 MG, UNK
     Route: 037
     Dates: start: 20170904, end: 20170904
  21. METHOTREXATE. [Suspect]
     Active Substance: METHOTREXATE
     Dosage: 10 MG, UNK
     Route: 037
     Dates: start: 20171005, end: 20171005

REACTIONS (1)
  - Febrile neutropenia [Recovered/Resolved]

NARRATIVE: CASE EVENT DATE: 20171022
